FAERS Safety Report 10487297 (Version 2)
Quarter: 2015Q4

REPORT INFORMATION
  Report Type: Report from Study
  Country: US (occurrence: US)
  Receive Date: 20141001
  Receipt Date: 20151016
  Transmission Date: 20160304
  Serious: Yes (Hospitalization, Other)
  Sender: FDA-Public Use
  Company Number: US-AMGEN-USASP2014074899

PATIENT
  Age: 71 Year
  Sex: Female

DRUGS (6)
  1. ENBREL [Suspect]
     Active Substance: ETANERCEPT
     Dosage: UNK
     Route: 065
  2. CODEINE [Suspect]
     Active Substance: CODEINE
     Indication: PRODUCT USED FOR UNKNOWN INDICATION
     Dosage: UNK
     Route: 065
  3. METOTREXATE [Concomitant]
     Active Substance: METHOTREXATE SODIUM
     Dosage: 15 MG, QWK FOR 10 YEARS
     Route: 048
  4. AMBIEN [Suspect]
     Active Substance: ZOLPIDEM TARTRATE
     Indication: PRODUCT USED FOR UNKNOWN INDICATION
     Dosage: UNK
     Route: 065
  5. ENBREL [Suspect]
     Active Substance: ETANERCEPT
     Indication: RHEUMATOID ARTHRITIS
     Dosage: 50 MG, QWK
     Route: 065
     Dates: start: 20060425
  6. LYRICA [Suspect]
     Active Substance: PREGABALIN
     Indication: PRODUCT USED FOR UNKNOWN INDICATION
     Dosage: UNK
     Route: 065

REACTIONS (12)
  - Diverticulitis [Recovered/Resolved]
  - Hypertension [Unknown]
  - Bronchitis [Unknown]
  - Psoriasis [Unknown]
  - Intestinal resection [Recovered/Resolved]
  - Colonic abscess [Recovered/Resolved]
  - Sinus disorder [Not Recovered/Not Resolved]
  - Vein disorder [Unknown]
  - Sinusitis [Recovered/Resolved]
  - Hypersensitivity [Unknown]
  - Drug hypersensitivity [Unknown]
  - Injection site haemorrhage [Not Recovered/Not Resolved]

NARRATIVE: CASE EVENT DATE: 201308
